FAERS Safety Report 4809218-7 (Version None)
Quarter: 2005Q4

REPORT INFORMATION
  Report Type: 
  Country: None (occurrence: None)
  Receive Date: 20051021
  Receipt Date: 20051014
  Transmission Date: 20060501
  Serious: No
  Sender: FDA-Public Use
  Company Number: 05H-153-0303140-00

PATIENT
  Age: 4 Day
  Sex: Female
  Weight: 2.004 kg

DRUGS (1)
  1. EPINEPHRINE [Suspect]
     Dosage: 2 MG, INTRAVENOUS
     Route: 042

REACTIONS (5)
  - HYPOKALAEMIA [None]
  - MEDICATION ERROR [None]
  - NEONATAL DISORDER [None]
  - OVERDOSE [None]
  - RHABDOMYOLYSIS [None]
